FAERS Safety Report 6097798-6 (Version None)
Quarter: 2009Q1

REPORT INFORMATION
  Report Type: 
  Country: None (occurrence: None)
  Receive Date: 20090227
  Receipt Date: 20090220
  Transmission Date: 20090719
  Serious: Yes (Hospitalization)
  Sender: FDA-Public Use
  Company Number: FR-JNJFOC-20090204980

PATIENT
  Sex: Male

DRUGS (20)
  1. RISPERDAL [Suspect]
     Route: 048
  2. RISPERDAL [Suspect]
     Indication: DELUSION
     Route: 048
  3. VITAMIN B COMPLEX CAP [Concomitant]
     Route: 065
  4. ATARAX [Concomitant]
     Route: 048
  5. CARDENSIEL [Concomitant]
     Route: 048
  6. RENAGEL [Concomitant]
     Route: 048
  7. KARDEGIC [Concomitant]
     Route: 065
  8. TAHOR [Concomitant]
     Route: 065
  9. NOVOLOG MIX 70/30 [Concomitant]
     Route: 065
  10. DOLIPRANE [Concomitant]
     Route: 065
  11. MOPRAL [Concomitant]
     Route: 065
  12. NEURONTIN [Concomitant]
     Route: 065
  13. SPECIAFOLDINE [Concomitant]
     Route: 065
  14. FUMAFER [Concomitant]
     Route: 065
  15. DUFALAC [Concomitant]
     Route: 065
  16. NEORECORMON [Concomitant]
     Route: 065
  17. BICARBONATE DE SODIUM [Concomitant]
     Route: 065
  18. CALCIDIA [Concomitant]
     Route: 065
  19. KAYEXALATE [Concomitant]
     Route: 065
  20. AMLOR [Concomitant]
     Route: 065

REACTIONS (2)
  - ALTERED STATE OF CONSCIOUSNESS [None]
  - HEPATITIS CHOLESTATIC [None]
